FAERS Safety Report 14962970 (Version 1)
Quarter: 2018Q2

REPORT INFORMATION
  Report Type: Spontaneous
  Country: GB (occurrence: GB)
  Receive Date: 20180601
  Receipt Date: 20180601
  Transmission Date: 20180711
  Serious: Yes (Other)
  Sender: FDA-Public Use
  Company Number: GB-PFIZER INC-2018222254

PATIENT
  Age: 17 Year
  Sex: Male
  Weight: 40 kg

DRUGS (1)
  1. DEFEROXAMINE MESILATE [Suspect]
     Active Substance: DEFEROXAMINE MESYLATE
     Indication: THALASSAEMIA BETA
     Dosage: 50 MG/KG, UNK
     Route: 041

REACTIONS (1)
  - Spinal X-ray abnormal [Unknown]
